FAERS Safety Report 14974784 (Version 1)
Quarter: 2018Q2

REPORT INFORMATION
  Report Type: Spontaneous
  Country: PL (occurrence: PL)
  Receive Date: 20180605
  Receipt Date: 20180605
  Transmission Date: 20180711
  Serious: Yes (Hospitalization)
  Sender: FDA-Public Use
  Company Number: PL-PFIZER INC-2018224021

PATIENT
  Age: 12 Year
  Sex: Male
  Weight: 84 kg

DRUGS (1)
  1. DALACIN C [Suspect]
     Active Substance: CLINDAMYCIN PHOSPHATE
     Indication: SALIVARY GLAND DISORDER
     Dosage: UNK, EVERY 8 HOURS
     Route: 048
     Dates: start: 20171102, end: 20171113

REACTIONS (2)
  - Skin lesion [Recovering/Resolving]
  - Product use in unapproved indication [Unknown]

NARRATIVE: CASE EVENT DATE: 20171102
